FAERS Safety Report 20542863 (Version 1)
Quarter: 2022Q1

REPORT INFORMATION
  Report Type: Spontaneous
  Country: US (occurrence: US)
  Receive Date: 20220302
  Receipt Date: 20220302
  Transmission Date: 20220423
  Serious: Yes (Other)
  Sender: FDA-Public Use
  Company Number: US-MALLINCKRODT-T202200895

PATIENT
  Age: 3 Year
  Sex: Male

DRUGS (1)
  1. INOMAX [Suspect]
     Active Substance: NITRIC OXIDE
     Indication: Coronavirus infection
     Dosage: UNK(INHALATION)
     Route: 055

REACTIONS (7)
  - Pulmonary arteriovenous fistula [Recovered/Resolved]
  - Therapeutic embolisation [Recovered/Resolved]
  - General physical health deterioration [Recovered/Resolved]
  - Hypoxia [Recovered/Resolved]
  - Condition aggravated [Recovered/Resolved]
  - Drug ineffective for unapproved indication [Unknown]
  - Product use issue [Unknown]
